FAERS Safety Report 6426482-1 (Version None)
Quarter: 2009Q4

REPORT INFORMATION
  Report Type: 
  Country: None (occurrence: None)
  Receive Date: 20091104
  Receipt Date: 20091026
  Transmission Date: 20100525
  Serious: Yes (Other)
  Sender: FDA-Public Use
  Company Number: US-TYCO HEALTHCARE/MALLINCKRODT-T200901952

PATIENT
  Sex: Male

DRUGS (7)
  1. METHADONE [Suspect]
     Indication: RESTLESS LEGS SYNDROME
     Dosage: 1 IN EVENING, 1 AT BEDTIME
     Route: 048
  2. LOVASTATIN [Concomitant]
     Indication: BLOOD CHOLESTEROL INCREASED
     Dosage: 40 MG, UNK
     Route: 048
  3. CITALOPRAM HYDROBROMIDE [Concomitant]
     Dosage: 40 MG, UNK
  4. CITALOPRAM HYDROBROMIDE [Concomitant]
     Dosage: INCREASED TO 60 MG 2 MONTHS AGO
  5. LEVOTHYROXINE SODIUM [Concomitant]
     Indication: HYPOTHYROIDISM
     Dosage: 100 UG, QD
  6. ASPIRIN [Concomitant]
  7. VERAMYST [Concomitant]
     Indication: HYPERSENSITIVITY
     Dosage: 2 SPRAYS EACH NOSTRIL DAILY
     Route: 045

REACTIONS (9)
  - ACTIVITIES OF DAILY LIVING IMPAIRED [None]
  - ASTHENIA [None]
  - DELUSION [None]
  - FACIAL PARESIS [None]
  - FATIGUE [None]
  - HYPERHIDROSIS [None]
  - HYPERSOMNIA [None]
  - HYPOAESTHESIA FACIAL [None]
  - HYPOTENSION [None]
